FAERS Safety Report 24312499 (Version 2)
Quarter: 2024Q3

REPORT INFORMATION
  Report Type: Spontaneous
  Country: US (occurrence: US)
  Receive Date: 20240912
  Receipt Date: 20240916
  Transmission Date: 20241016
  Serious: No
  Sender: PFIZER
  Company Number: US-PFIZER INC-202400254883

PATIENT
  Age: 49 Year
  Sex: Female

DRUGS (3)
  1. VELSIPITY [Suspect]
     Active Substance: ETRASIMOD ARGININE
     Dosage: 2 MG
  2. METHOTREXATE [Concomitant]
     Active Substance: METHOTREXATE
     Dosage: 8 WEEKLY
  3. PREDNISONE [Concomitant]
     Active Substance: PREDNISONE
     Dosage: UNK

REACTIONS (1)
  - Nausea [Unknown]
